FAERS Safety Report 9217957 (Version 1)
Quarter: 2013Q2

REPORT INFORMATION
  Report Type: Spontaneous
  Country: JP (occurrence: JP)
  Receive Date: 20130408
  Receipt Date: 20130408
  Transmission Date: 20140414
  Serious: Yes (Death)
  Sender: FDA-Public Use
  Company Number: JP-ASTRAZENECA-2013SE22009

PATIENT
  Age: 74 Year
  Sex: Female

DRUGS (3)
  1. OMEPRAL [Suspect]
     Route: 048
  2. NICARDIPINE HYDROCHLORIDE [Suspect]
     Dosage: DOSE UNKNOWN
     Route: 065
  3. PANSPORIN [Concomitant]
     Dosage: DOSE UNKNOWN

REACTIONS (1)
  - Toxic epidermal necrolysis [Fatal]
